FAERS Safety Report 7851965-7 (Version None)
Quarter: 2011Q4

REPORT INFORMATION
  Report Type: 
  Country: None (occurrence: None)
  Receive Date: 20111026
  Receipt Date: 20111013
  Transmission Date: 20120403
  Serious: Yes (Hospitalization)
  Sender: FDA-Public Use
  Company Number: CH-ELI_LILLY_AND_COMPANY-CH201110003916

PATIENT
  Age: 20 Year
  Sex: Male
  Weight: 84.8 kg

DRUGS (14)
  1. ZYPREXA [Suspect]
     Dosage: 5 MG, QD
     Route: 048
     Dates: start: 20110629, end: 20110703
  2. ZYPREXA [Suspect]
     Dosage: 10 MG, QD
     Route: 048
     Dates: start: 20110623, end: 20110628
  3. SOLIAN [Concomitant]
     Dosage: 300 MG, QD
     Route: 048
     Dates: start: 20110627, end: 20110628
  4. ZYPREXA [Suspect]
     Dosage: 5 MG, QD
     Route: 048
     Dates: start: 20110601, end: 20110607
  5. ZYPREXA [Suspect]
     Dosage: 15 MG, QD
     Route: 048
     Dates: start: 20110615, end: 20110622
  6. ESCITALOPRAM [Concomitant]
     Dosage: 10 MG, QD
     Route: 048
     Dates: start: 20110622, end: 20110704
  7. ZYPREXA [Suspect]
     Dosage: 10 MG, QD
     Route: 048
     Dates: start: 20110608, end: 20110614
  8. ZYPREXA [Suspect]
     Dosage: 20 MG, QD
     Route: 048
     Dates: start: 20110802
  9. ESCITALOPRAM [Concomitant]
     Dosage: 20 MG, QD
     Route: 048
     Dates: start: 20110705
  10. SOLIAN [Concomitant]
     Dosage: 200 MG, QD
     Route: 048
     Dates: start: 20110623, end: 20110626
  11. SOLIAN [Concomitant]
     Dosage: 400 MG, QD
     Route: 048
     Dates: start: 20110629, end: 20110703
  12. SOLIAN [Concomitant]
     Dosage: 500 MG, QD
     Route: 048
     Dates: start: 20110704, end: 20110708
  13. VALERIAN EXTRACT [Concomitant]
     Dosage: 1000 MG, QD
     Route: 048
     Dates: start: 20110531, end: 20110711
  14. ESCITALOPRAM [Concomitant]
     Dosage: 5 MG, QD
     Route: 048
     Dates: start: 20110616, end: 20110621

REACTIONS (6)
  - GAMMA-GLUTAMYLTRANSFERASE INCREASED [None]
  - ALANINE AMINOTRANSFERASE INCREASED [None]
  - HYPERPHAGIA [None]
  - ASPARTATE AMINOTRANSFERASE INCREASED [None]
  - WEIGHT INCREASED [None]
  - PLATELET COUNT INCREASED [None]
